FAERS Safety Report 8092743-6 (Version None)
Quarter: 2012Q1

REPORT INFORMATION
  Report Type: 
  Country: None (occurrence: None)
  Receive Date: 20120128
  Receipt Date: 20110804
  Transmission Date: 20120608
  Serious: No
  Sender: FDA-Public Use
  Company Number: US-ABBOTT-11P-163-0844130-00

PATIENT
  Age: 24 Year
  Sex: Female

DRUGS (3)
  1. HUMIRA [Suspect]
     Indication: CROHN'S DISEASE
     Dates: start: 20110715
  2. APRISO [Concomitant]
     Indication: PRODUCT USED FOR UNKNOWN INDICATION
     Dosage: IN THE MORNING AND AT NIGHT
  3. SPRINTEC [Concomitant]
     Indication: CONTRACEPTION
     Dosage: PILL

REACTIONS (4)
  - MENSTRUATION DELAYED [None]
  - EPISTAXIS [None]
  - SWELLING FACE [None]
  - URINE ODOUR ABNORMAL [None]
